FAERS Safety Report 21708462 (Version 1)
Quarter: 2022Q4

REPORT INFORMATION
  Report Type: Spontaneous
  Country: GB (occurrence: GB)
  Receive Date: 20221210
  Receipt Date: 20221210
  Transmission Date: 20230113
  Serious: Yes (Hospitalization, Other)
  Sender: FDA-Public Use
  Company Number: GB-MHRA-MED-202211241636554150-MQSVP

PATIENT
  Age: 32 Year
  Sex: Female

DRUGS (1)
  1. TERBINAFINE [Suspect]
     Active Substance: TERBINAFINE
     Indication: Nail infection
     Dosage: 250 MILLIGRAM, ONCE A DAY(250MG OD)
     Route: 065
     Dates: start: 20220623, end: 202210

REACTIONS (1)
  - Drug-induced liver injury [Not Recovered/Not Resolved]

NARRATIVE: CASE EVENT DATE: 20221121
